FAERS Safety Report 9183168 (Version 1)
Quarter: 2013Q1

REPORT INFORMATION
  Report Type: Spontaneous
  Country: US (occurrence: US)
  Receive Date: 20130322
  Receipt Date: 20130322
  Transmission Date: 20140127
  Serious: No
  Sender: FDA-Public Use
  Company Number: US-BRISTOL-MYERS SQUIBB COMPANY-16386450

PATIENT
  Age: 78 Year
  Sex: Female
  Weight: 50 kg

DRUGS (4)
  1. ERBITUX [Suspect]
     Indication: TONGUE NEOPLASM MALIGNANT STAGE UNSPECIFIED
     Dosage: INFUSION
  2. TYLENOL [Concomitant]
     Dosage: LIQUID TYLENOL
  3. BENADRYL [Concomitant]
     Indication: PREMEDICATION
     Dosage: 25MG IV(ADDITIONAL)
     Route: 042
  4. SOLU-CORTEF [Concomitant]
     Indication: PREMEDICATION
     Dosage: 60MG IV(ADDITIONAL)
     Route: 042

REACTIONS (1)
  - Rash [Recovering/Resolving]
